FAERS Safety Report 8557682-2 (Version None)
Quarter: 2012Q2

REPORT INFORMATION
  Report Type: 
  Country: None (occurrence: None)
  Receive Date: 20120418
  Receipt Date: 20110426
  Transmission Date: 20120825
  Serious: Yes (Other)
  Sender: FDA-Public Use
  Company Number: PHHY2011US21853

PATIENT
  Age: 72 Year
  Sex: Female

DRUGS (8)
  1. CALCIUM (CALCIUM), 1200 MG [Concomitant]
  2. VITAMIN D [Concomitant]
  3. LOSARTAN /HYDROCHLOROTHIAZIDE (HYDROCHLOROTHIAZIDE, LOSARTAN POTASSIUM [Suspect]
  4. NORVASC (AMLODIPINE BESILATE), 10 MG [Concomitant]
  5. OMEGA (CARBINOXAMINE MALEATE) [Concomitant]
  6. DIOVAN HCT [Suspect]
     Dosage: 160/12.5 MG, QD, ORAL
     Route: 048
  7. TURMERIC (CURCUMA LONGA RHIZOME), 500 MG [Concomitant]
  8. METOPROLOL TARTRATE [Concomitant]

REACTIONS (2)
  - SWELLING FACE [None]
  - LIP SWELLING [None]
